FAERS Safety Report 5581813-X (Version None)
Quarter: 2008Q1

REPORT INFORMATION
  Report Type: 
  Country: None (occurrence: None)
  Receive Date: 20080104
  Receipt Date: 20071227
  Transmission Date: 20080703
  Serious: Yes (Hospitalization)
  Sender: FDA-Public Use
  Company Number: ES-PFIZER INC-2007108035

PATIENT
  Age: 72 Year
  Sex: Female

DRUGS (3)
  1. LYRICA [Suspect]
     Indication: EPILEPSY
     Route: 048
     Dates: start: 20070727, end: 20070907
  2. MEGESTROL [Suspect]
     Indication: GASTRIC CANCER
     Route: 048
     Dates: start: 20070727, end: 20070907
  3. IMATINIB [Suspect]
     Indication: GASTRIC CANCER
     Route: 048
     Dates: start: 20070727, end: 20070907

REACTIONS (1)
  - TOXIC SKIN ERUPTION [None]
